FAERS Safety Report 6741337-0 (Version None)
Quarter: 2010Q2

REPORT INFORMATION
  Report Type: 
  Country: None (occurrence: None)
  Receive Date: 20100526
  Receipt Date: 20100517
  Transmission Date: 20101027
  Serious: Yes (Hospitalization)
  Sender: FDA-Public Use
  Company Number: FR-PFIZER INC-2010061281

PATIENT
  Age: 5 Week
  Sex: Female
  Weight: 3.3 kg

DRUGS (5)
  1. TRIFLUCAN [Suspect]
     Indication: CANDIDIASIS
     Dosage: 30 MG, 1X/DAY (LOADED DOSE)
     Route: 042
     Dates: start: 20100324
  2. TRIFLUCAN [Suspect]
     Dosage: 20 MG, 1X/DAY
     Route: 042
     Dates: end: 20100328
  3. TRIFLUCAN [Suspect]
     Dosage: UNK
     Route: 048
     Dates: start: 20100329, end: 20100330
  4. DOLIPRANE [Suspect]
     Indication: PYREXIA
     Dosage: 40 MG, 4X/DAY
     Route: 054
     Dates: start: 20100327, end: 20100328
  5. TIORFAN [Suspect]
     Indication: GASTROENTERITIS ROTAVIRUS
     Dosage: 10 MG, 1X/DAY
     Route: 048
     Dates: start: 20100328, end: 20100329

REACTIONS (2)
  - CYTOLYTIC HEPATITIS [None]
  - TRANSAMINASES INCREASED [None]
